FAERS Safety Report 20374631 (Version 1)
Quarter: 2022Q1

REPORT INFORMATION
  Report Type: Spontaneous
  Country: US (occurrence: None)
  Receive Date: 20220124
  Receipt Date: 20220124
  Transmission Date: 20220423
  Serious: No
  Sender: FDA-Public Use
  Company Number: None

PATIENT
  Age: 28 Year
  Sex: Female
  Weight: 77.1 kg

DRUGS (1)
  1. VANCOMYCIN [Suspect]
     Active Substance: VANCOMYCIN
     Indication: Subcutaneous abscess
     Dosage: FREQUENCY : EVERY 8 HOURS;?
     Route: 041
     Dates: start: 20220120, end: 20220121

REACTIONS (3)
  - Contraindicated product prescribed [None]
  - Contraindicated product administered [None]
  - Exposure during pregnancy [None]

NARRATIVE: CASE EVENT DATE: 20220120
